FAERS Safety Report 17464579 (Version 1)
Quarter: 2020Q1

REPORT INFORMATION
  Report Type: Spontaneous
  Country: US (occurrence: US)
  Receive Date: 20200226
  Receipt Date: 20200226
  Transmission Date: 20200409
  Serious: No
  Sender: FDA-Public Use
  Company Number: US-009507513-2002USA010028

PATIENT
  Age: 74 Year
  Sex: Male

DRUGS (1)
  1. BELSOMRA [Suspect]
     Active Substance: SUVOREXANT
     Indication: INSOMNIA
     Dosage: 1 TABLET NIGHTLY AT BEDTIME
     Route: 048

REACTIONS (2)
  - Chills [Recovered/Resolved]
  - Sleep paralysis [Recovered/Resolved]
